FAERS Safety Report 7824818-8 (Version None)
Quarter: 2011Q4

REPORT INFORMATION
  Report Type: 
  Country: None (occurrence: None)
  Receive Date: 20111019
  Receipt Date: 20110301
  Transmission Date: 20120403
  Serious: No
  Sender: FDA-Public Use
  Company Number: US-BRISTOL-MYERS SQUIBB COMPANY-15527880

PATIENT
  Age: 67 Year
  Sex: Female

DRUGS (4)
  1. AVALIDE [Suspect]
     Dosage: 1DF=150/12.5MG
  2. MAGNESIUM OXIDE [Concomitant]
  3. PREMARIN [Concomitant]
  4. DILTIAZEM CD [Concomitant]
     Dosage: CAPS

REACTIONS (1)
  - HYPERTENSION [None]
